FAERS Safety Report 5157375-8 (Version None)
Quarter: 2006Q4

REPORT INFORMATION
  Report Type: 
  Country: None (occurrence: None)
  Receive Date: 20061127
  Receipt Date: 20061110
  Transmission Date: 20070319
  Serious: Yes (Other)
  Sender: FDA-Public Use
  Company Number: DE-AVENTIS-200613288DE

PATIENT
  Age: 43 Year
  Sex: Female
  Weight: 50 kg

DRUGS (5)
  1. CLEXANE [Suspect]
     Indication: THROMBOSIS
     Route: 058
     Dates: start: 20061023, end: 20061101
  2. CLEXANE [Suspect]
     Route: 058
     Dates: start: 20061101
  3. BACLOFEN [Concomitant]
     Indication: MULTIPLE SCLEROSIS
  4. NEURONTIN [Concomitant]
     Indication: MULTIPLE SCLEROSIS
  5. BELLADONNYSAT [Concomitant]
     Indication: MULTIPLE SCLEROSIS

REACTIONS (7)
  - ALANINE AMINOTRANSFERASE INCREASED [None]
  - ASPARTATE AMINOTRANSFERASE INCREASED [None]
  - BLOOD BILIRUBIN INCREASED [None]
  - CHOLELITHIASIS [None]
  - GAMMA-GLUTAMYLTRANSFERASE INCREASED [None]
  - LIVER FUNCTION TEST ABNORMAL [None]
  - URINARY TRACT INFECTION [None]
